FAERS Safety Report 5605569-7 (Version None)
Quarter: 2008Q1

REPORT INFORMATION
  Report Type: 
  Country: None (occurrence: None)
  Receive Date: 20080129
  Receipt Date: 20080128
  Transmission Date: 20080703
  Serious: Yes (Other)
  Sender: FDA-Public Use
  Company Number: US-RB-009100-08

PATIENT
  Sex: Male
  Weight: 74.25 kg

DRUGS (4)
  1. SUBOXONE [Suspect]
     Indication: DRUG DEPENDENCE
     Dosage: 20-24 MG DAILY
     Route: 060
     Dates: start: 20070801, end: 20071201
  2. SUBOXONE [Suspect]
     Route: 060
     Dates: start: 20071201
  3. DEPAKOTE [Concomitant]
     Indication: MIGRAINE
     Dosage: 3 TABLETS A DAY
     Route: 048
  4. PROPRANOLOL [Concomitant]
     Indication: DRUG USE FOR UNKNOWN INDICATION
     Dosage: 2 TABLETS A DAY
     Route: 048

REACTIONS (1)
  - CONVULSION [None]
